FAERS Safety Report 16205266 (Version 1)
Quarter: 2019Q2

REPORT INFORMATION
  Report Type: Spontaneous
  Country: CA (occurrence: CA)
  Receive Date: 20190416
  Receipt Date: 20190416
  Transmission Date: 20190711
  Serious: Yes (Hospitalization, Other)
  Sender: FDA-Public Use
  Company Number: CA-CONCORDIA PHARMACEUTICALS INC.-GSH201904-001157

PATIENT
  Age: 73 Year
  Sex: Female

DRUGS (8)
  1. PLAQUENIL [Suspect]
     Active Substance: HYDROXYCHLOROQUINE SULFATE
     Dosage: UNK, QD
     Route: 065
     Dates: start: 201812
  2. NAPROXEN. [Concomitant]
     Active Substance: NAPROXEN
  3. DEPO-MEDROL [Concomitant]
     Active Substance: METHYLPREDNISOLONE ACETATE
     Dates: start: 2019, end: 2019
  4. ENTOCORT [Concomitant]
     Active Substance: BUDESONIDE
  5. ALENDRONATE [Concomitant]
     Active Substance: ALENDRONATE SODIUM
     Dates: start: 201903
  6. LEFLUNOMIDE. [Suspect]
     Active Substance: LEFLUNOMIDE
     Indication: PLATELET COUNT DECREASED
     Dosage: DAILY DOSE: 10 UNKNOWN
     Route: 065
     Dates: start: 2015, end: 2018
  7. METHOTREXATE. [Concomitant]
     Active Substance: METHOTREXATE
     Dates: start: 2000, end: 2018
  8. SULFASALAZINE. [Concomitant]
     Active Substance: SULFASALAZINE

REACTIONS (8)
  - Fall [Unknown]
  - Rheumatoid arthritis [Unknown]
  - Pruritus [Unknown]
  - Lumbar vertebral fracture [Unknown]
  - Inflammatory pain [Unknown]
  - Back pain [Unknown]
  - Arthralgia [Unknown]
  - Alopecia [Unknown]

NARRATIVE: CASE EVENT DATE: 201808
